FAERS Safety Report 25803389 (Version 3)
Quarter: 2025Q4

REPORT INFORMATION
  Report Type: Spontaneous
  Country: US (occurrence: US)
  Receive Date: 20250915
  Receipt Date: 20251017
  Transmission Date: 20260118
  Serious: Yes (Other)
  Sender: NOVO NORDISK
  Company Number: US-NOVOPROD-1518388

PATIENT
  Age: 69 Year
  Sex: Female
  Weight: 68.934 kg

DRUGS (16)
  1. OZEMPIC [Suspect]
     Active Substance: SEMAGLUTIDE
     Dosage: 0.25 MG QW
     Route: 058
     Dates: start: 20250723
  2. OZEMPIC [Suspect]
     Active Substance: SEMAGLUTIDE
     Indication: Type 2 diabetes mellitus
     Dosage: 0.75MG  QW
     Route: 058
     Dates: start: 20250317, end: 20250415
  3. VITAMIN D3 [Concomitant]
     Active Substance: CHOLECALCIFEROL
     Indication: Product used for unknown indication
     Dosage: 2000 IU, QD
     Route: 048
     Dates: start: 20110221
  4. VITAMIN B12 [Concomitant]
     Active Substance: CYANOCOBALAMIN
     Indication: Product used for unknown indication
     Dosage: 1000 MCG QW
     Route: 048
     Dates: start: 20201209
  5. UBIQUINOL [Concomitant]
     Active Substance: UBIQUINOL
     Indication: Product used for unknown indication
     Dosage: 100 MG QD
     Route: 048
     Dates: start: 20230907
  6. XANAX [Concomitant]
     Active Substance: ALPRAZOLAM
     Indication: Product used for unknown indication
     Dosage: 1 TAB BY ORAL 3 TIMES A DAY
     Route: 048
     Dates: start: 20240917, end: 20250708
  7. ARMOUR THYROID [Concomitant]
     Active Substance: THYROID, PORCINE
     Indication: Product used for unknown indication
     Dosage: 60 MG, QD
     Route: 048
     Dates: end: 20241017
  8. ASCORBIC ACID [Concomitant]
     Active Substance: ASCORBIC ACID
     Indication: Product used for unknown indication
     Dosage: 100 MG QD
     Route: 048
     Dates: start: 20241028
  9. METFORMIN [Concomitant]
     Active Substance: METFORMIN HYDROCHLORIDE
     Indication: Product used for unknown indication
     Dosage: 500 MG BID
     Route: 048
     Dates: start: 20241028, end: 20250708
  10. FOSAMAX [Concomitant]
     Active Substance: ALENDRONATE SODIUM
     Indication: Product used for unknown indication
     Dosage: 70 MG QW
     Route: 048
     Dates: start: 20241028
  11. VALACYCLOVIR HYDROCHLORIDE [Concomitant]
     Active Substance: VALACYCLOVIR HYDROCHLORIDE
     Indication: Product used for unknown indication
     Dosage: 2 GRAM PER GRAM, PRN
     Route: 048
     Dates: start: 20241028
  12. ARMOUR THYROID [Concomitant]
     Active Substance: THYROID, PORCINE
     Indication: Product used for unknown indication
     Dosage: 60 MG QD
     Route: 048
     Dates: start: 20241220
  13. TELMISARTAN [Concomitant]
     Active Substance: TELMISARTAN
     Indication: Product used for unknown indication
     Dosage: 40 MG QD
     Route: 048
     Dates: start: 20250130, end: 20250708
  14. IBANDRONATE SODIUM [Concomitant]
     Active Substance: IBANDRONATE SODIUM
     Indication: Product used for unknown indication
     Dosage: ONCE A MONTH
     Route: 048
     Dates: start: 20250418
  15. ZALEPLON [Concomitant]
     Active Substance: ZALEPLON
     Indication: Product used for unknown indication
     Dosage: 5 MG QD AT BEDTIME
     Route: 048
  16. ZOLPIDEM [Concomitant]
     Active Substance: ZOLPIDEM TARTRATE
     Indication: Product used for unknown indication
     Dosage: 5 MG QD AT BEDTIME
     Dates: end: 20250916

REACTIONS (14)
  - Neuropathy peripheral [Recovering/Resolving]
  - Visual field defect [Recovered/Resolved]
  - Migraine [Recovered/Resolved]
  - Spinal osteoarthritis [Unknown]
  - Spinal stenosis [Unknown]
  - Gait disturbance [Unknown]
  - Peripheral swelling [Recovered/Resolved]
  - Periorbital haemorrhage [Unknown]
  - Paraesthesia [Recovering/Resolving]
  - Dizziness [Unknown]
  - Dizziness [Unknown]
  - Product use issue [Unknown]
  - Wrong technique in product usage process [Unknown]
  - Blood sodium decreased [Unknown]

NARRATIVE: CASE EVENT DATE: 20250301
